FAERS Safety Report 6750174-2 (Version None)
Quarter: 2010Q2

REPORT INFORMATION
  Report Type: 
  Country: None (occurrence: None)
  Receive Date: 20100601
  Receipt Date: 20100520
  Transmission Date: 20101027
  Serious: Yes (Death)
  Sender: FDA-Public Use
  Company Number: JP-PFIZER INC-2010064112

PATIENT
  Age: 17 Year
  Sex: Female
  Weight: 33.7 kg

DRUGS (8)
  1. SILDENAFIL CITRATE [Suspect]
     Indication: PULMONARY ARTERIAL HYPERTENSION
     Dosage: 20 MG, 3X/DAY
     Route: 048
     Dates: start: 20080424, end: 20100225
  2. FLOLAN [Concomitant]
     Dosage: UNK
     Route: 042
     Dates: start: 20030127, end: 20100226
  3. TRACLEER [Concomitant]
     Route: 048
     Dates: start: 20050713, end: 20100225
  4. ALDACTONE [Concomitant]
     Route: 048
     Dates: start: 20030118, end: 20100225
  5. MERCAZOLE [Concomitant]
     Route: 048
     Dates: start: 20040530
  6. ANCARON [Concomitant]
     Route: 048
     Dates: start: 20100119, end: 20100225
  7. THYRADIN [Concomitant]
     Route: 048
     Dates: start: 20100119, end: 20100225
  8. LASIX [Concomitant]
     Dosage: UNK
     Route: 048
     Dates: start: 20030118, end: 20100203

REACTIONS (1)
  - DEATH [None]
